FAERS Safety Report 6399908-X (Version None)
Quarter: 2009Q4

REPORT INFORMATION
  Report Type: 
  Country: None (occurrence: None)
  Receive Date: 20091014
  Receipt Date: 20091008
  Transmission Date: 20100525
  Serious: Yes (Hospitalization)
  Sender: FDA-Public Use
  Company Number: US-GILEAD-2009-0023704

PATIENT
  Sex: Female

DRUGS (8)
  1. LETAIRIS [Suspect]
     Indication: PULMONARY ARTERIAL HYPERTENSION
     Route: 048
     Dates: start: 20090301
  2. ETANERCEPT [Suspect]
     Dates: end: 20090801
  3. METHOTREXATE [Suspect]
  4. PREDNISONE [Suspect]
  5. REVATIO [Concomitant]
  6. OSCAL [Concomitant]
  7. NAPROSYN [Concomitant]
  8. PREVACID [Concomitant]

REACTIONS (1)
  - SUBCUTANEOUS ABSCESS [None]
